FAERS Safety Report 18024978 (Version 1)
Quarter: 2020Q3

REPORT INFORMATION
  Report Type: Spontaneous
  Country: IT (occurrence: IT)
  Receive Date: 20200715
  Receipt Date: 20200715
  Transmission Date: 20201103
  Serious: Yes (Other)
  Sender: FDA-Public Use
  Company Number: IT-ACCORD-189793

PATIENT
  Age: 73 Year
  Sex: Female

DRUGS (16)
  1. RANITIDINE. [Concomitant]
     Active Substance: RANITIDINE
  2. CHLORPHENAMINE/CHLORPHENAMINE MALEATE/CHLORPHENAMINE RESINATE/CHLORPHENAMINE TANNATE [Concomitant]
     Active Substance: CHLORPHENIRAMINE
  3. EPIRUBICIN [Suspect]
     Active Substance: EPIRUBICIN
     Indication: BREAST NEOPLASM
     Dates: start: 20110505, end: 20110823
  4. PACLITAXEL/PACLITAXEL LIPOSOME [Suspect]
     Active Substance: PACLITAXEL
     Indication: BREAST NEOPLASM
     Dates: start: 20190823, end: 20200117
  5. PERTUZUMAB. [Suspect]
     Active Substance: PERTUZUMAB
     Indication: BREAST NEOPLASM
     Dates: start: 20190823, end: 20200214
  6. METHYLPREDNISOLONE. [Concomitant]
     Active Substance: METHYLPREDNISOLONE
  7. DOCETAXEL. [Suspect]
     Active Substance: DOCETAXEL
     Indication: BREAST NEOPLASM
     Dates: start: 20110714, end: 20110825
  8. CYCLOPHOSPHAMIDE/CYCLOPHOSPHAMIDE MONOHYDRATE [Suspect]
     Active Substance: CYCLOPHOSPHAMIDE
     Indication: BREAST NEOPLASM
     Dates: start: 20110505, end: 20110623
  9. DEXAMETHASONE. [Concomitant]
     Active Substance: DEXAMETHASONE
  10. LORATADINE. [Concomitant]
     Active Substance: LORATADINE
  11. GRANISETRON [Concomitant]
     Active Substance: GRANISETRON
  12. FLUOROURACIL. [Suspect]
     Active Substance: FLUOROURACIL
     Indication: BREAST NEOPLASM
     Dates: start: 20110505, end: 20110623
  13. TRASTUZUMAB. [Suspect]
     Active Substance: TRASTUZUMAB
     Indication: BREAST NEOPLASM
     Dates: start: 20110915, end: 20200214
  14. TROPISETRON [Concomitant]
     Active Substance: TROPISETRON
  15. APREPITANT. [Concomitant]
     Active Substance: APREPITANT
  16. PALONOSETRON. [Concomitant]
     Active Substance: PALONOSETRON HYDROCHLORIDE

REACTIONS (1)
  - Ejection fraction decreased [Unknown]

NARRATIVE: CASE EVENT DATE: 20200220
